FAERS Safety Report 9264953 (Version 1)
Quarter: 2013Q2

REPORT INFORMATION
  Report Type: Spontaneous
  Country: DE (occurrence: DE)
  Receive Date: 20130501
  Receipt Date: 20130501
  Transmission Date: 20140414
  Serious: Yes (Other)
  Sender: FDA-Public Use
  Company Number: DE-ACCORD-017389

PATIENT
  Age: 48 Year
  Sex: Female
  Weight: 74 kg

DRUGS (2)
  1. QUETIAPINE FUMARATE [Suspect]
     Indication: BIPOLAR I DISORDER
     Dosage: INCREASED TO 500 MG QD (18:00 HOURS) WITH IN 2 WEEKS
  2. CITALOPRAM [Concomitant]
     Indication: BIPOLAR I DISORDER
     Dosage: INCREASED TO 40 MG QD (8:00 HOURS) WITHIN 2 WEEKS

REACTIONS (2)
  - Food craving [Recovered/Resolved]
  - Weight increased [Recovered/Resolved]
